FAERS Safety Report 5420830-7 (Version None)
Quarter: 2007Q3

REPORT INFORMATION
  Report Type: 
  Country: None (occurrence: None)
  Receive Date: 20070821
  Receipt Date: 20070813
  Transmission Date: 20080115
  Serious: Yes (Other)
  Sender: FDA-Public Use
  Company Number: NL-AMGEN-US239241

PATIENT
  Sex: Female
  Weight: 92 kg

DRUGS (10)
  1. ENBREL [Suspect]
     Indication: ANKYLOSING SPONDYLITIS
     Dosage: PRE-FILLED SYRINGE 25MG 2X PER WEEK
     Route: 058
     Dates: start: 20070228, end: 20070401
  2. ENBREL [Suspect]
     Dosage: LYOPHILISED: 2X 25 MG PER WEEK
     Route: 058
     Dates: start: 20070625
  3. ANTAGEL [Concomitant]
  4. PARACETAMOL [Concomitant]
  5. SEREVENT [Concomitant]
  6. CITALOPRAM HYDROBROMIDE [Concomitant]
  7. LORAZEPAM [Concomitant]
  8. MAGNESIUM OXIDE [Concomitant]
  9. PANTOPRAZOLE SODIUM [Concomitant]
  10. ARCOXIA [Concomitant]

REACTIONS (5)
  - CHEST DISCOMFORT [None]
  - CHEST PAIN [None]
  - DYSPNOEA [None]
  - INJECTION SITE ERYTHEMA [None]
  - INJECTION SITE OEDEMA [None]
